FAERS Safety Report 17017867 (Version 1)
Quarter: 2019Q4

REPORT INFORMATION
  Report Type: Report from Study
  Country: BE (occurrence: BE)
  Receive Date: 20191111
  Receipt Date: 20191111
  Transmission Date: 20200122
  Serious: Yes (Hospitalization, Other)
  Sender: FDA-Public Use
  Company Number: BE-MYLANLABS-2019M1106605

PATIENT
  Age: 62 Year
  Sex: Female
  Weight: 83.5 kg

DRUGS (21)
  1. LEUCOVORIN [FOLINIC ACID] [Suspect]
     Active Substance: LEUCOVORIN
     Indication: COLORECTAL CANCER
     Route: 042
     Dates: start: 20161222
  2. LANTUS [Concomitant]
     Active Substance: INSULIN GLARGINE
     Dosage: UNK
     Route: 065
     Dates: start: 20130709
  3. LITICAN                            /00690801/ [Concomitant]
     Active Substance: ALIZAPRIDE
     Dosage: UNK
  4. DOMPERIDONE [Concomitant]
     Active Substance: DOMPERIDONE
     Dosage: UNK
     Route: 065
     Dates: start: 20161222
  5. SOMATULINE                         /01330101/ [Concomitant]
     Active Substance: LANREOTIDE ACETATE
     Dosage: UNK
     Route: 065
     Dates: start: 20161209
  6. BEVACIZUMAB. [Suspect]
     Active Substance: BEVACIZUMAB
     Indication: COLORECTAL CANCER
     Dosage: UNK UNK, BIWEEKLY
     Route: 042
     Dates: start: 20161222, end: 20170713
  7. ACTRAPID [Concomitant]
     Active Substance: INSULIN HUMAN
     Indication: HYPERGLYCAEMIA
     Dosage: UNK
     Route: 065
     Dates: start: 20170106
  8. LYSOMUCIL [Concomitant]
     Active Substance: ACETYLCYSTEINE
     Indication: COUGH
     Dosage: UNK
     Route: 065
     Dates: start: 20170207
  9. LIPITOR [Concomitant]
     Active Substance: ATORVASTATIN CALCIUM
     Dosage: UNK
     Route: 065
     Dates: start: 20150316
  10. EMCONCOR [Concomitant]
     Active Substance: BISOPROLOL FUMARATE
     Dosage: UNK
     Route: 065
     Dates: start: 20121011
  11. INUVAIR [Concomitant]
     Active Substance: BECLOMETHASONE DIPROPIONATE\FORMOTEROL FUMARATE
     Indication: BRONCHITIS
     Dosage: UNK
     Route: 065
     Dates: start: 20170119, end: 20170320
  12. PANTOMED                           /00178901/ [Concomitant]
     Active Substance: DEXPANTHENOL
     Dosage: UNK
     Route: 065
     Dates: start: 20130709
  13. MIRTAZAPINE. [Concomitant]
     Active Substance: MIRTAZAPINE
     Dosage: UNK
     Route: 065
     Dates: start: 20170105
  14. OXALIPLATIN MYLAN [Suspect]
     Active Substance: OXALIPLATIN
     Indication: COLORECTAL CANCER
     Dosage: UNK UNK, BIWEEKLY
     Route: 042
     Dates: start: 20170102
  15. LASIX [Concomitant]
     Active Substance: FUROSEMIDE
     Indication: WEIGHT INCREASED
     Dosage: UNK
     Route: 065
     Dates: start: 20170111, end: 20170111
  16. NEULASTA [Concomitant]
     Active Substance: PEGFILGRASTIM
     Dosage: UNK
     Route: 065
     Dates: start: 20160929
  17. ALOXI [Concomitant]
     Active Substance: PALONOSETRON HYDROCHLORIDE
     Dosage: UNK
     Route: 065
     Dates: start: 20160929
  18. BEVACIZUMAB. [Suspect]
     Active Substance: BEVACIZUMAB
     Dosage: UNK
     Route: 042
     Dates: start: 20170913, end: 20170927
  19. 5-FU                               /00098801/ [Suspect]
     Active Substance: FLUOROURACIL
     Indication: COLORECTAL CANCER
     Dosage: UNK UNK, BIWEEKLY
     Route: 042
     Dates: start: 20170102
  20. NOVORAPID [Concomitant]
     Active Substance: INSULIN ASPART
     Dosage: UNK
     Route: 065
     Dates: start: 20130709
  21. D-CURE [Concomitant]
     Active Substance: CHOLECALCIFEROL
     Dosage: UNK
     Route: 065
     Dates: start: 20170105

REACTIONS (20)
  - Thoracic vertebral fracture [Not Recovered/Not Resolved]
  - Weight increased [Recovered/Resolved]
  - Bronchitis [Recovered/Resolved]
  - Decubitus ulcer [Not Recovered/Not Resolved]
  - Aphthous ulcer [Not Recovered/Not Resolved]
  - Cough [Not Recovered/Not Resolved]
  - International normalised ratio increased [Not Recovered/Not Resolved]
  - Polyneuropathy [Not Recovered/Not Resolved]
  - Constipation [Not Recovered/Not Resolved]
  - Nausea [Not Recovered/Not Resolved]
  - Small intestinal obstruction [Recovered/Resolved]
  - Weight decreased [Not Recovered/Not Resolved]
  - Hypomagnesaemia [Recovered/Resolved]
  - General physical health deterioration [Not Recovered/Not Resolved]
  - Hyperglycaemia [Not Recovered/Not Resolved]
  - Vitamin D deficiency [Not Recovered/Not Resolved]
  - Hypokalaemia [Recovered/Resolved]
  - Decreased appetite [Not Recovered/Not Resolved]
  - Thrombocytopenia [Not Recovered/Not Resolved]
  - Urinary tract infection [Recovered/Resolved]

NARRATIVE: CASE EVENT DATE: 20170105
